FAERS Safety Report 5366844-7 (Version None)
Quarter: 2007Q2

REPORT INFORMATION
  Report Type: 
  Country: None (occurrence: None)
  Receive Date: 20070622
  Receipt Date: 20061214
  Transmission Date: 20071010
  Serious: No
  Sender: FDA-Public Use
  Company Number: US-ASTRAZENECA-2006UW28014

PATIENT
  Sex: Male

DRUGS (3)
  1. RHINOCORT [Suspect]
     Indication: TINNITUS
     Dosage: 32 MCG 30 METER SPRAY SAMPLE
     Route: 045
  2. RHINOCORT [Suspect]
     Indication: NASAL CONGESTION
     Dosage: 32 MCG 30 METER SPRAY SAMPLE
     Route: 045
  3. ANXIETY PRESCRIPTION MEDICATIONS [Concomitant]

REACTIONS (2)
  - NASAL DISCOMFORT [None]
  - NASAL DRYNESS [None]
